FAERS Safety Report 24060395 (Version 2)
Quarter: 2024Q3

REPORT INFORMATION
  Report Type: Spontaneous
  Country: US (occurrence: US)
  Receive Date: 20240708
  Receipt Date: 20240721
  Transmission Date: 20241016
  Serious: Yes (Other)
  Sender: BAYER
  Company Number: US-BAYER-2024A095254

PATIENT
  Age: 92 Year
  Sex: Male

DRUGS (1)
  1. NUBEQA [Suspect]
     Active Substance: DAROLUTAMIDE
     Indication: Prostate cancer
     Dosage: UNK

REACTIONS (3)
  - Parkinson^s disease [None]
  - Dysphagia [None]
  - Wrong technique in product usage process [None]

NARRATIVE: CASE EVENT DATE: 20240501
